FAERS Safety Report 7487619-9 (Version None)
Quarter: 2011Q2

REPORT INFORMATION
  Report Type: 
  Country: None (occurrence: None)
  Receive Date: 20110518
  Receipt Date: 20110429
  Transmission Date: 20111010
  Serious: No
  Sender: FDA-Public Use
  Company Number: US-B.I. PHARMACEUTICALS,INC./RIDGEFIELD-2011-BP-03547BP

PATIENT
  Sex: Female

DRUGS (11)
  1. LIBRAX [Concomitant]
     Indication: DIARRHOEA
  2. METOPROLOL SUCCINATE [Concomitant]
     Dosage: 300 MG
  3. RYTHMOL [Suspect]
     Indication: ARRHYTHMIA
     Dosage: 150 MG
     Route: 048
     Dates: start: 20110125
  4. FELODIPINE [Concomitant]
     Dosage: 10 MG
  5. APROZALAM [Concomitant]
  6. RYMYALL [Concomitant]
  7. SPIRONOLACTONE [Concomitant]
     Dosage: 5 MG
  8. PRADAXA [Suspect]
     Indication: ATRIAL FIBRILLATION
     Dosage: 300 MG
     Route: 048
     Dates: start: 20110125
  9. LIBRAX [Concomitant]
     Indication: IRRITABLE BOWEL SYNDROME
     Dates: start: 20080101
  10. COZAAR [Concomitant]
  11. LEVOXYL [Concomitant]
     Dosage: 2 MG

REACTIONS (2)
  - DIARRHOEA [None]
  - CONSTIPATION [None]
